FAERS Safety Report 20847638 (Version 1)
Quarter: 2022Q2

REPORT INFORMATION
  Report Type: Spontaneous
  Country: None (occurrence: US)
  Receive Date: 20220519
  Receipt Date: 20220519
  Transmission Date: 20220721
  Serious: No
  Sender: FDA-Public Use
  Company Number: US-P+L Developments of Newyork Corporation-2128926

PATIENT
  Age: 26 Year
  Sex: Male

DRUGS (1)
  1. LORATADINE [Suspect]
     Active Substance: LORATADINE
     Indication: Hypersensitivity
     Route: 048
     Dates: start: 20220512, end: 20220512

REACTIONS (1)
  - Wrong dose [Recovered/Resolved with Sequelae]

NARRATIVE: CASE EVENT DATE: 20220512
